FAERS Safety Report 4526058-7 (Version None)
Quarter: 2004Q4

REPORT INFORMATION
  Report Type: 
  Country: None (occurrence: None)
  Receive Date: 20041129
  Receipt Date: 20040802
  Transmission Date: 20050328
  Serious: Yes (Hospitalization)
  Sender: FDA-Public Use
  Company Number: USA040874404

PATIENT
  Age: 78 Year
  Sex: Female

DRUGS (2)
  1. ZYPREXA [Suspect]
     Indication: BIPOLAR DISORDER
     Dosage: 2.5 MG/2 DAY
     Dates: start: 20020101
  2. ACETYLSALICYLIC ACID SRT [Concomitant]

REACTIONS (1)
  - ABDOMINAL PAIN [None]
